FAERS Safety Report 18458226 (Version 1)
Quarter: 2020Q4

REPORT INFORMATION
  Report Type: Spontaneous
  Country: PL (occurrence: PL)
  Receive Date: 20201103
  Receipt Date: 20201103
  Transmission Date: 20210114
  Serious: Yes (Other)
  Sender: FDA-Public Use
  Company Number: PL-SUN PHARMACEUTICAL INDUSTRIES LTD-2020RR-266241

PATIENT
  Age: 33 Year
  Sex: Female

DRUGS (2)
  1. TEMOZOLOMIDE. [Suspect]
     Active Substance: TEMOZOLOMIDE
     Indication: PALLIATIVE CARE
     Dosage: 200 MG/M2 10-14 DAY, RHYTHM 28 DAYS)
     Route: 065
  2. CAPECITABINE. [Suspect]
     Active Substance: CAPECITABINE
     Indication: PALLIATIVE CARE
     Dosage: 2X750 MG/M2 1-14 DAY
     Route: 065

REACTIONS (4)
  - Therapy partial responder [Unknown]
  - Respiratory tract infection [Unknown]
  - Thrombocytopenia [Unknown]
  - Neutropenia [Unknown]
